FAERS Safety Report 9818828 (Version 4)
Quarter: 2014Q2

REPORT INFORMATION
  Report Type: Spontaneous
  Country: US (occurrence: US)
  Receive Date: 20140115
  Receipt Date: 20140618
  Transmission Date: 20141212
  Serious: Yes (Other)
  Sender: FDA-Public Use
  Company Number: US-PFIZER INC-2014013022

PATIENT
  Sex: Male

DRUGS (1)
  1. LYRICA [Suspect]
     Dosage: UNK

REACTIONS (7)
  - Pharyngeal oedema [Unknown]
  - Oral mucosal eruption [Unknown]
  - Tongue disorder [Unknown]
  - Nodule [Unknown]
  - Rash [Unknown]
  - Acne [Unknown]
  - Somnolence [Unknown]
